FAERS Safety Report 16444906 (Version 21)
Quarter: 2024Q1

REPORT INFORMATION
  Report Type: Spontaneous
  Country: US (occurrence: US)
  Receive Date: 20190618
  Receipt Date: 20240111
  Transmission Date: 20240410
  Serious: Yes (Hospitalization, Other)
  Sender: FDA-Public Use
  Company Number: US-PFIZER INC-2019258954

PATIENT
  Age: 70 Year
  Sex: Female
  Weight: 68.95 kg

DRUGS (9)
  1. PREMARIN [Suspect]
     Active Substance: ESTROGENS, CONJUGATED
     Indication: Hot flush
     Dosage: 0.9 MG
     Route: 048
     Dates: start: 1986
  2. PREMARIN [Suspect]
     Active Substance: ESTROGENS, CONJUGATED
     Indication: Menopause
     Dosage: 0.9 MG, 1X/DAY
     Dates: start: 1990
  3. PREMARIN [Suspect]
     Active Substance: ESTROGENS, CONJUGATED
     Dosage: 1 DF, ALTERNATE DAY
     Dates: start: 202107
  4. PREMARIN [Suspect]
     Active Substance: ESTROGENS, CONJUGATED
     Dosage: 0.9 MG, DAILY
  5. PRILOSEC [Concomitant]
     Active Substance: OMEPRAZOLE MAGNESIUM
     Indication: Dyspepsia
     Dosage: UNK, AS NEEDED (ONLY AS NEEDED 14DAYS)
     Dates: start: 2014
  6. EXCEDRIN MIGRAINE [Concomitant]
     Active Substance: ACETAMINOPHEN\ASPIRIN\CAFFEINE
     Indication: Headache
     Dosage: 4 DF
     Dates: start: 1986
  7. EXCEDRIN MIGRAINE [Concomitant]
     Active Substance: ACETAMINOPHEN\ASPIRIN\CAFFEINE
     Indication: Sneezing
  8. EXCEDRIN MIGRAINE [Concomitant]
     Active Substance: ACETAMINOPHEN\ASPIRIN\CAFFEINE
     Indication: Paranasal sinus discomfort
  9. PENICILLIN G SODIUM [Concomitant]
     Active Substance: PENICILLIN G SODIUM
     Indication: Dental caries
     Dosage: UNK
     Dates: start: 202002

REACTIONS (19)
  - Nephrolithiasis [Recovered/Resolved]
  - Gallbladder disorder [Recovered/Resolved]
  - Arthritis [Not Recovered/Not Resolved]
  - Eye operation [Unknown]
  - Diverticulitis [Not Recovered/Not Resolved]
  - Cataract [Unknown]
  - Autoimmune thyroiditis [Unknown]
  - Atrial fibrillation [Unknown]
  - Suicidal ideation [Unknown]
  - Drug ineffective [Unknown]
  - Intentional product misuse [Unknown]
  - Accident [Unknown]
  - Injury [Unknown]
  - Fatigue [Unknown]
  - Malaise [Unknown]
  - Vitamin D decreased [Unknown]
  - Tinnitus [Unknown]
  - Illness [Unknown]
  - Drug withdrawal syndrome [Not Recovered/Not Resolved]

NARRATIVE: CASE EVENT DATE: 20140101
